FAERS Safety Report 20306288 (Version 2)
Quarter: 2022Q1

REPORT INFORMATION
  Report Type: Spontaneous
  Country: BR (occurrence: BR)
  Receive Date: 20220106
  Receipt Date: 20220301
  Transmission Date: 20220423
  Serious: Yes (Other)
  Sender: FDA-Public Use
  Company Number: BR-ELI_LILLY_AND_COMPANY-BR202112012852

PATIENT
  Age: 55 Year
  Sex: Female

DRUGS (3)
  1. TRULICITY [Suspect]
     Active Substance: DULAGLUTIDE
     Indication: Weight decreased
     Dosage: 0.75 MG, WEEKLY (1/W)
     Route: 065
     Dates: start: 20211220
  2. PURAN [Concomitant]
     Active Substance: LEVOTHYROXINE SODIUM
     Dosage: 100 MG, UNKNOWN
     Route: 065
  3. PANTOPRAZOLE [Concomitant]
     Active Substance: PANTOPRAZOLE
     Dosage: 40 MG, UNKNOWN
     Route: 065

REACTIONS (13)
  - Syncope [Recovered/Resolved]
  - Blood pressure decreased [Not Recovered/Not Resolved]
  - Dry mouth [Unknown]
  - Thirst [Unknown]
  - Migraine [Unknown]
  - Hyperhidrosis [Unknown]
  - Flushing [Unknown]
  - Paraesthesia [Unknown]
  - Cyanosis [Unknown]
  - Off label use [Unknown]
  - Nausea [Unknown]
  - Malaise [Not Recovered/Not Resolved]
  - Lethargy [Unknown]

NARRATIVE: CASE EVENT DATE: 20211220
